FAERS Safety Report 5778147-7 (Version None)
Quarter: 2008Q2

REPORT INFORMATION
  Report Type: 
  Country: None (occurrence: None)
  Receive Date: 20080619
  Receipt Date: 20080616
  Transmission Date: 20081010
  Serious: Yes (Other)
  Sender: FDA-Public Use
  Company Number: GB-WYE-G01704108

PATIENT
  Sex: Male

DRUGS (2)
  1. EFFEXOR [Suspect]
     Dosage: 162.5MG, SPLIT INTO TWO DOSES, AM AND PM
     Route: 048
     Dates: start: 19960529
  2. EPILIM [Concomitant]
     Dosage: UNKNOWN

REACTIONS (1)
  - DYSMORPHISM [None]
